FAERS Safety Report 14816422 (Version 2)
Quarter: 2018Q2

REPORT INFORMATION
  Report Type: Report from Study
  Country: US (occurrence: US)
  Receive Date: 20180426
  Receipt Date: 20180504
  Transmission Date: 20180711
  Serious: Yes (Hospitalization)
  Sender: FDA-Public Use
  Company Number: US-JNJFOC-20180429121

PATIENT
  Age: 69 Year
  Sex: Male
  Weight: 74 kg

DRUGS (1)
  1. SILTUXIMAB [Suspect]
     Active Substance: SILTUXIMAB
     Indication: PLASMA CELL MYELOMA
     Route: 042
     Dates: start: 20180406

REACTIONS (1)
  - Sepsis [Recovered/Resolved]

NARRATIVE: CASE EVENT DATE: 20180420
